FAERS Safety Report 6515817-7 (Version None)
Quarter: 2009Q4

REPORT INFORMATION
  Report Type: 
  Country: None (occurrence: None)
  Receive Date: 20091223
  Receipt Date: 20091215
  Transmission Date: 20100525
  Serious: Yes (Hospitalization)
  Sender: FDA-Public Use
  Company Number: JP-JNJFOC-20080306658

PATIENT
  Sex: Male
  Weight: 64 kg

DRUGS (34)
  1. REMICADE [Suspect]
     Route: 042
  2. REMICADE [Suspect]
     Route: 042
  3. REMICADE [Suspect]
     Route: 042
  4. REMICADE [Suspect]
     Route: 042
  5. REMICADE [Suspect]
     Route: 042
  6. REMICADE [Suspect]
     Route: 042
  7. REMICADE [Suspect]
     Indication: BEHCET'S SYNDROME
     Route: 042
  8. ISCOTIN [Suspect]
     Indication: PROPHYLAXIS
     Route: 048
  9. ROCEPHIN [Concomitant]
  10. ROCEPHIN [Concomitant]
  11. ROCEPHIN [Concomitant]
     Indication: BEHCET'S SYNDROME
  12. NEORAL [Concomitant]
     Route: 048
  13. NEORAL [Concomitant]
     Route: 048
  14. NEORAL [Concomitant]
     Route: 048
  15. NEORAL [Concomitant]
     Indication: BEHCET'S SYNDROME
     Route: 048
  16. ANTIHISTAMINES [Concomitant]
     Route: 065
  17. ANTIHISTAMINES [Concomitant]
     Route: 065
  18. ANTIHISTAMINES [Concomitant]
     Route: 065
  19. ANTIHISTAMINES [Concomitant]
     Route: 065
  20. ANTIHISTAMINES [Concomitant]
     Route: 065
  21. ANTIHISTAMINES [Concomitant]
     Indication: PROPHYLAXIS
     Route: 065
  22. ANTIHISTAMINES [Concomitant]
     Indication: PREMEDICATION
     Route: 065
  23. ACETAMINOPHEN [Concomitant]
     Route: 065
  24. ACETAMINOPHEN [Concomitant]
     Route: 065
  25. ACETAMINOPHEN [Concomitant]
     Route: 065
  26. ACETAMINOPHEN [Concomitant]
     Route: 065
  27. ACETAMINOPHEN [Concomitant]
     Route: 065
  28. ACETAMINOPHEN [Concomitant]
     Indication: PROPHYLAXIS
     Route: 065
  29. ACETAMINOPHEN [Concomitant]
     Indication: PREMEDICATION
     Route: 065
  30. METHOTREXATE [Concomitant]
     Route: 048
  31. METHOTREXATE [Concomitant]
     Indication: BEHCET'S SYNDROME
     Route: 048
  32. OMEPRAL [Concomitant]
     Indication: PROPHYLAXIS
     Route: 048
  33. COLCHICINE [Concomitant]
     Indication: BEHCET'S SYNDROME
     Route: 048
  34. BAKTAR [Concomitant]
     Indication: PROPHYLAXIS
     Route: 048

REACTIONS (2)
  - BEHCET'S SYNDROME [None]
  - HEPATIC FUNCTION ABNORMAL [None]
